FAERS Safety Report 4332052-1 (Version None)
Quarter: 2004Q2

REPORT INFORMATION
  Report Type: 
  Country: None (occurrence: None)
  Receive Date: 20040401
  Receipt Date: 20040401
  Transmission Date: 20050107
  Serious: Yes (Other)
  Sender: FDA-Public Use
  Company Number: None

PATIENT
  Age: 41 Year
  Sex: Male
  Weight: 90.7194 kg

DRUGS (1)
  1. AFRIN [Suspect]
     Dosage: TWICE DAILY

REACTIONS (5)
  - DRUG DEPENDENCE [None]
  - MEDICATION ERROR [None]
  - NASAL CONGESTION [None]
  - PANIC REACTION [None]
  - PHARMACEUTICAL PRODUCT COMPLAINT [None]
